FAERS Safety Report 19944527 (Version 1)
Quarter: 2021Q4

REPORT INFORMATION
  Report Type: Spontaneous
  Country: US (occurrence: US)
  Receive Date: 20211011
  Receipt Date: 20211011
  Transmission Date: 20220303
  Serious: Yes (Hospitalization, Other)
  Sender: FDA-Public Use
  Company Number: US-SA-2021SA331102

PATIENT
  Age: 71 Year
  Sex: Female
  Weight: 80.7 kg

DRUGS (6)
  1. PLAVIX [Suspect]
     Active Substance: CLOPIDOGREL BISULFATE
     Indication: Microvascular coronary artery disease
     Dosage: UNK
     Route: 065
     Dates: end: 2021
  2. PLAVIX [Suspect]
     Active Substance: CLOPIDOGREL BISULFATE
     Dosage: UNK
     Route: 065
     Dates: start: 2021
  3. HUMIRA [Suspect]
     Active Substance: ADALIMUMAB
     Indication: Rheumatoid arthritis
     Dosage: CITRATE FREE( 40 MG 1 IN 2 WEEKS)
     Dates: start: 2009, end: 202108
  4. HUMIRA [Suspect]
     Active Substance: ADALIMUMAB
     Dosage: CITRATE FREE( 40 MG 1 IN 2 WEEKS)
     Route: 058
     Dates: start: 20210927
  5. PFIZER-BIONTECH COVID-19 VACCINE [Concomitant]
     Active Substance: TOZINAMERAN
     Indication: COVID-19 immunisation
     Dosage: UNK
     Dates: start: 20210306
  6. PFIZER-BIONTECH COVID-19 VACCINE [Concomitant]
     Active Substance: TOZINAMERAN
     Dosage: UNK
     Route: 030
     Dates: start: 20210327

REACTIONS (10)
  - Pneumothorax [Unknown]
  - Acute respiratory failure [Recovered/Resolved]
  - Post procedural complication [Unknown]
  - Pneumonia [Recovered/Resolved]
  - Diabetes mellitus [Unknown]
  - Renal failure [Recovered/Resolved]
  - Internal haemorrhage [Recovered/Resolved]
  - Full blood count abnormal [Recovered/Resolved]
  - Oxygen saturation decreased [Recovered/Resolved]
  - Rales [Recovering/Resolving]

NARRATIVE: CASE EVENT DATE: 20190101
